FAERS Safety Report 8035996-2 (Version None)
Quarter: 2012Q1

REPORT INFORMATION
  Report Type: 
  Country: None (occurrence: None)
  Receive Date: 20120111
  Receipt Date: 20120103
  Transmission Date: 20120608
  Serious: Yes (Other)
  Sender: FDA-Public Use
  Company Number: BR-ASTELLAS-2011US007948

PATIENT
  Age: 1 Month
  Sex: Female

DRUGS (4)
  1. TEICOPLANIN [Concomitant]
     Indication: PRODUCT USED FOR UNKNOWN INDICATION
     Dosage: UNK
     Route: 065
  2. MEROPENEM [Concomitant]
     Indication: PRODUCT USED FOR UNKNOWN INDICATION
     Dosage: UNK
     Route: 065
  3. VANCOMYCIN [Concomitant]
     Indication: PRODUCT USED FOR UNKNOWN INDICATION
     Dosage: UNK
     Route: 065
  4. MYCAMINE [Suspect]
     Indication: FUNGAL INFECTION
     Dosage: 50 MG, UNKNOWN/D
     Route: 042
     Dates: start: 20111010, end: 20111104

REACTIONS (3)
  - OVERDOSE [None]
  - OFF LABEL USE [None]
  - NEONATAL CHOLESTASIS [None]
